FAERS Safety Report 19567419 (Version 1)
Quarter: 2021Q3

REPORT INFORMATION
  Report Type: Spontaneous
  Country: US (occurrence: US)
  Receive Date: 20210715
  Receipt Date: 20210715
  Transmission Date: 20211014
  Serious: No
  Sender: FDA-Public Use
  Company Number: US-GLENMARK PHARMACEUTICALS-2021GMK052472

PATIENT

DRUGS (2)
  1. ETHINYL ESTRADIOL/ETHINYL ESTRADIOL/ETHINYL ESTRADIOL/NORGESTIMATE [Suspect]
     Active Substance: ETHINYL ESTRADIOL\NORGESTIMATE
     Indication: PRODUCT USED FOR UNKNOWN INDICATION
     Dosage: UNK
     Route: 065
     Dates: start: 2020
  2. ETHINYL ESTRADIOL/ETHINYL ESTRADIOL/ETHINYL ESTRADIOL/NORGESTIMATE [Suspect]
     Active Substance: ETHINYL ESTRADIOL\NORGESTIMATE
     Dosage: UNK
     Route: 065
     Dates: start: 2021

REACTIONS (2)
  - Product quality issue [Unknown]
  - Thirst [Unknown]

NARRATIVE: CASE EVENT DATE: 2021
